FAERS Safety Report 9379758 (Version 1)
Quarter: 2013Q3

REPORT INFORMATION
  Report Type: Spontaneous
  Country: CN (occurrence: CN)
  Receive Date: 20130702
  Receipt Date: 20130702
  Transmission Date: 20140515
  Serious: Yes (Other)
  Sender: FDA-Public Use
  Company Number: PHHY2013CN066490

PATIENT
  Sex: 0

DRUGS (2)
  1. CLARITHROMYCIN [Suspect]
     Indication: HELICOBACTER GASTRITIS
     Dosage: 500 MG, BID
     Route: 048
  2. RABEPRAZOLE [Interacting]
     Indication: HELICOBACTER GASTRITIS
     Dosage: 10 MG, BID
     Route: 048

REACTIONS (11)
  - Substance-induced psychotic disorder [Recovered/Resolved]
  - Dissociative disorder [Recovered/Resolved]
  - Disorientation [Recovered/Resolved]
  - Abnormal behaviour [Recovered/Resolved]
  - Depressed level of consciousness [Recovered/Resolved]
  - Feeling abnormal [Recovered/Resolved]
  - Disturbance in attention [Recovered/Resolved]
  - Communication disorder [Recovered/Resolved]
  - Speech disorder [Recovered/Resolved]
  - Emotional disorder [Recovered/Resolved]
  - Drug interaction [Recovered/Resolved]
